FAERS Safety Report 5955058-5 (Version None)
Quarter: 2008Q4

REPORT INFORMATION
  Report Type: 
  Country: None (occurrence: None)
  Receive Date: 20081117
  Receipt Date: 20081103
  Transmission Date: 20090506
  Serious: Yes (Hospitalization)
  Sender: FDA-Public Use
  Company Number: B0544670A

PATIENT
  Age: 52 Year
  Sex: Female

DRUGS (11)
  1. AUGMENTIN '125' [Suspect]
     Indication: DRUG USE FOR UNKNOWN INDICATION
     Dosage: 1G TWICE PER DAY
     Route: 048
     Dates: start: 20080414, end: 20080421
  2. BREXIN [Suspect]
     Indication: DRUG USE FOR UNKNOWN INDICATION
     Dosage: 20MG PER DAY
     Route: 048
     Dates: start: 20080414, end: 20080418
  3. ALODONT [Concomitant]
     Route: 002
     Dates: start: 20080414, end: 20080421
  4. STABLON [Concomitant]
     Route: 065
  5. COTAREG [Concomitant]
     Route: 065
  6. TANAKAN [Concomitant]
     Route: 065
  7. DOLIPRANE [Concomitant]
     Route: 065
  8. FOSAVANCE [Concomitant]
     Route: 065
  9. MELIANE [Concomitant]
     Route: 065
  10. VELITEN [Concomitant]
     Route: 065
  11. BUSPIRONE HCL [Concomitant]
     Route: 065

REACTIONS (15)
  - ABDOMINAL PAIN [None]
  - BACTERIA STOOL IDENTIFIED [None]
  - CHOLESTASIS [None]
  - COLONIC STENOSIS [None]
  - DIARRHOEA [None]
  - GASTROINTESTINAL DISORDER [None]
  - GENERAL PHYSICAL HEALTH DETERIORATION [None]
  - HAEMODYNAMIC INSTABILITY [None]
  - INFLAMMATION [None]
  - LEUKOCYTOSIS [None]
  - PSEUDOMEMBRANOUS COLITIS [None]
  - PYREXIA [None]
  - RECTAL TENESMUS [None]
  - SIGMOIDITIS [None]
  - WEIGHT DECREASED [None]
